FAERS Safety Report 15735090 (Version 1)
Quarter: 2018Q4

REPORT INFORMATION
  Report Type: Spontaneous
  Country: US (occurrence: US)
  Receive Date: 20181203
  Receipt Date: 20181203
  Transmission Date: 20190205
  Serious: Yes (Death, Life-Threatening, Hospitalization)
  Sender: FDA-Public Use
  Company Number: None

PATIENT
  Age: 31 Year
  Sex: Female

DRUGS (1)
  1. MIRENA [Suspect]
     Active Substance: LEVONORGESTREL
     Dates: start: 20171201, end: 20180301

REACTIONS (6)
  - Brain neoplasm [None]
  - Ill-defined disorder [None]
  - Discomfort [None]
  - Intracranial pressure increased [None]
  - Migraine [None]
  - Mass [None]

NARRATIVE: CASE EVENT DATE: 20171201
